FAERS Safety Report 10236925 (Version 4)
Quarter: 2015Q1

REPORT INFORMATION
  Report Type: Spontaneous
  Country: BR (occurrence: BR)
  Receive Date: 20140613
  Receipt Date: 20150331
  Transmission Date: 20150720
  Serious: Yes (Other)
  Sender: FDA-Public Use
  Company Number: BR-PFIZER INC-2014159955

PATIENT
  Age: 36 Year
  Sex: Female
  Weight: 155 kg

DRUGS (1)
  1. PREMARIN [Suspect]
     Active Substance: ESTROGENS, CONJUGATED
     Indication: ASSISTED FERTILISATION
     Dosage: 1.25 MG, DAILY
     Dates: start: 2013

REACTIONS (2)
  - Hypercoagulation [Unknown]
  - Off label use [Not Recovered/Not Resolved]
